FAERS Safety Report 14021556 (Version 1)
Quarter: 2017Q3

REPORT INFORMATION
  Report Type: Report from Study
  Country: CA (occurrence: CA)
  Receive Date: 20170928
  Receipt Date: 20170928
  Transmission Date: 20171128
  Serious: Yes (Hospitalization)
  Sender: FDA-Public Use
  Company Number: CA-TAKEDA-2017TUS019977

PATIENT
  Age: 27 Year
  Sex: Male

DRUGS (6)
  1. STELARA [Concomitant]
     Active Substance: USTEKINUMAB
     Indication: HIDRADENITIS
     Dosage: UNK
     Dates: start: 20160601
  2. VEDOLIZUMAB [Suspect]
     Active Substance: VEDOLIZUMAB
     Indication: CROHN^S DISEASE
     Dosage: 300 MG, UNK
     Route: 042
     Dates: start: 20161104
  3. CORTISONE [Concomitant]
     Active Substance: CORTISONE\HYDROCORTISONE
     Indication: HIDRADENITIS
     Dosage: UNK UNK, MONTHLY
  4. METHOTREXATE. [Concomitant]
     Active Substance: METHOTREXATE
     Indication: HIDRADENITIS
     Dosage: UNK UNK, MONTHLY
     Dates: start: 20160801
  5. KINERET [Concomitant]
     Active Substance: ANAKINRA
     Indication: HIDRADENITIS
     Dosage: UNK UNK, QD
     Dates: start: 201702
  6. BACLOFEN. [Concomitant]
     Active Substance: BACLOFEN
     Indication: MUSCLE SPASMS
     Dosage: 10 MG, QD

REACTIONS (1)
  - Surgery [Unknown]
